FAERS Safety Report 20397565 (Version 2)
Quarter: 2022Q1

REPORT INFORMATION
  Report Type: Spontaneous
  Country: US (occurrence: US)
  Receive Date: 20220131
  Receipt Date: 20220201
  Transmission Date: 20220424
  Serious: No
  Sender: FDA-Public Use
  Company Number: US-ABBVIE-21K-163-3777082-00

PATIENT
  Age: 73 Year
  Sex: Female
  Weight: 56.750 kg

DRUGS (3)
  1. HUMIRA [Suspect]
     Active Substance: ADALIMUMAB
     Indication: Product used for unknown indication
     Route: 058
     Dates: end: 202003
  2. XELJANZ XR [Suspect]
     Active Substance: TOFACITINIB CITRATE
     Indication: Rheumatoid arthritis
     Route: 048
  3. LIBRIUM [Suspect]
     Active Substance: CHLORDIAZEPOXIDE HYDROCHLORIDE
     Indication: Product used for unknown indication
     Route: 065

REACTIONS (10)
  - Therapeutic product effect decreased [Unknown]
  - Pain [Not Recovered/Not Resolved]
  - Peripheral swelling [Recovering/Resolving]
  - Arthralgia [Unknown]
  - Joint swelling [Unknown]
  - Weight decreased [Unknown]
  - Arthritis [Unknown]
  - Back pain [Unknown]
  - Drug tolerance [Unknown]
  - Spinal pain [Unknown]

NARRATIVE: CASE EVENT DATE: 20200301
